FAERS Safety Report 23050071 (Version 3)
Quarter: 2025Q1

REPORT INFORMATION
  Report Type: Spontaneous
  Country: US (occurrence: US)
  Receive Date: 20231010
  Receipt Date: 20250221
  Transmission Date: 20250409
  Serious: No
  Sender: PFIZER
  Company Number: US-PFIZER INC-202300317488

PATIENT
  Age: 31 Year
  Sex: Female

DRUGS (1)
  1. BENEFIX [Suspect]
     Active Substance: COAGULATION FACTOR IX RECOMBINANT HUMAN\ISOPROPYL ALCOHOL
     Route: 042

REACTIONS (3)
  - Maternal exposure during pregnancy [Unknown]
  - Cough [Unknown]
  - Dysphagia [Unknown]

NARRATIVE: CASE EVENT DATE: 20230101
